FAERS Safety Report 7982207-X (Version None)
Quarter: 2011Q4

REPORT INFORMATION
  Report Type: 
  Country: None (occurrence: None)
  Receive Date: 20111215
  Receipt Date: 20111206
  Transmission Date: 20120403
  Serious: Yes (Hospitalization)
  Sender: FDA-Public Use
  Company Number: US-ELI_LILLY_AND_COMPANY-US201112001921

PATIENT
  Sex: Female

DRUGS (5)
  1. HUMALOG [Suspect]
     Dosage: 2 U, UNK
     Dates: start: 20090101
  2. HUMALOG [Suspect]
     Indication: DIABETES MELLITUS
     Dosage: 18 U, TID
     Dates: start: 20090101
  3. PAXIL [Concomitant]
     Dosage: UNK
  4. FUROSEMIDE [Concomitant]
     Dosage: UNK
  5. LANTUS [Concomitant]
     Dosage: UNK

REACTIONS (5)
  - OEDEMA PERIPHERAL [None]
  - MOVEMENT DISORDER [None]
  - NEUROPATHY PERIPHERAL [None]
  - CARDIAC FAILURE CONGESTIVE [None]
  - CELLULITIS [None]
